FAERS Safety Report 11529965 (Version 1)
Quarter: 2015Q3

REPORT INFORMATION
  Report Type: Spontaneous
  Country: DE (occurrence: None)
  Receive Date: 20150918
  Receipt Date: 20150918
  Transmission Date: 20151125
  Serious: Yes (Hospitalization)
  Sender: FDA-Public Use
  Company Number: 2015HINLIT0760

PATIENT
  Age: 71 Year
  Sex: Male

DRUGS (7)
  1. QUINAPRIL [Concomitant]
     Active Substance: QUINAPRIL\QUINAPRIL HYDROCHLORIDE
  2. SIMVASTATIN (SIMVASTATIN) UNKNOWN, UNKNOWN [Suspect]
     Active Substance: SIMVASTATIN
     Indication: MYOCARDIAL ISCHAEMIA
  3. EZETIMIBE. [Concomitant]
     Active Substance: EZETIMIBE
  4. AMLODIPINE [Concomitant]
     Active Substance: AMLODIPINE BESYLATE
  5. HYDROCHLOROTHIAZIDE. [Concomitant]
     Active Substance: HYDROCHLOROTHIAZIDE
  6. ACETYTLSALICYLIC ACID [Concomitant]
  7. BISOPROLOL [Concomitant]
     Active Substance: BISOPROLOL

REACTIONS (4)
  - Eczema [None]
  - Rash pruritic [None]
  - Photosensitivity reaction [None]
  - Periorbital oedema [None]
